FAERS Safety Report 6587899-8 (Version None)
Quarter: 2010Q1

REPORT INFORMATION
  Report Type: 
  Country: None (occurrence: None)
  Receive Date: 20100218
  Receipt Date: 20100208
  Transmission Date: 20100710
  Serious: Yes (Hospitalization)
  Sender: FDA-Public Use
  Company Number: JP-JNJFOC-20091205787

PATIENT
  Sex: Female
  Weight: 43 kg

DRUGS (9)
  1. REMICADE [Suspect]
     Indication: RHEUMATOID ARTHRITIS
     Route: 042
  2. REMICADE [Suspect]
     Route: 042
  3. REMICADE [Suspect]
     Route: 042
  4. PREDONINE [Suspect]
     Indication: RHEUMATOID ARTHRITIS
  5. RHEUMATREX [Suspect]
     Indication: RHEUMATOID ARTHRITIS
     Route: 048
  6. FOLIAMIN [Concomitant]
     Indication: RHEUMATOID ARTHRITIS
     Route: 048
  7. ACTONEL [Concomitant]
     Indication: RHEUMATOID ARTHRITIS
     Route: 048
  8. SELBEX [Concomitant]
     Indication: GASTRITIS
     Route: 048
  9. PARIET [Concomitant]
     Indication: REFLUX OESOPHAGITIS
     Route: 048

REACTIONS (3)
  - NAUSEA [None]
  - PNEUMONIA [None]
  - RHEUMATOID ARTHRITIS [None]
